FAERS Safety Report 6412016-4 (Version None)
Quarter: 2009Q4

REPORT INFORMATION
  Report Type: 
  Country: None (occurrence: None)
  Receive Date: 20091020
  Receipt Date: 20091012
  Transmission Date: 20100525
  Serious: Yes (Hospitalization)
  Sender: FDA-Public Use
  Company Number: TPA2009A02454

PATIENT
  Age: 72 Year
  Sex: Male
  Weight: 99.3377 kg

DRUGS (6)
  1. ULORIC [Suspect]
     Indication: GOUT
     Dosage: 40 MG, 1 IN 1 D, PER ORAL
     Route: 048
     Dates: start: 20090706, end: 20090701
  2. AMLODIPINE [Concomitant]
  3. ATENOLOL [Concomitant]
  4. LISINOPRIL [Concomitant]
  5. GLIMEPIRIDE [Concomitant]
  6. VITAMIN D [Concomitant]

REACTIONS (9)
  - ABDOMINAL PAIN [None]
  - CONDITION AGGRAVATED [None]
  - DEEP VEIN THROMBOSIS [None]
  - GOUT [None]
  - JOINT SPRAIN [None]
  - LEUKOCYTOSIS [None]
  - MUSCULAR WEAKNESS [None]
  - PAIN IN EXTREMITY [None]
  - PULMONARY EMBOLISM [None]
